FAERS Safety Report 8720340 (Version 2)
Quarter: 2012Q4

REPORT INFORMATION
  Report Type: 
  Country: US (occurrence: US)
  Receive Date: 20120813
  Receipt Date: 20120918
  Transmission Date: 20130627
  Serious: Yes (Death)
  Sender: FDA-Public Use
  Company Number: US-ELI_LILLY_AND_COMPANY-US201108006637

PATIENT
  Age: 73 Year
  Sex: Male
  Weight: 74.6 kg

DRUGS (12)
  1. FORTEO [Suspect]
     Indication: OSTEOPOROSIS
     Dosage: 20 ug, qd
     Route: 058
     Dates: start: 201107
  2. REMICADE [Concomitant]
  3. METHOTREXATE [Concomitant]
     Dosage: UNK, unknown
  4. CITALOPRAM [Concomitant]
     Dosage: UNK, unknown
  5. CRESTOR [Concomitant]
     Dosage: UNK, unknown
  6. VITAMIN D [Concomitant]
     Dosage: UNK, unknown
  7. ZETIA [Concomitant]
     Dosage: UNK, unknown
  8. FOLIC ACID [Concomitant]
     Dosage: UNK, unknown
  9. MULTIPLE VITAMINS [Concomitant]
     Dosage: UNK, unknown
  10. LISINOPRIL [Concomitant]
     Dosage: UNK, unknown
  11. COREG [Concomitant]
     Dosage: UNK, unknown
  12. PREVACID [Concomitant]
     Dosage: UNK, unknown

REACTIONS (5)
  - Drowning [Fatal]
  - Movement disorder [Unknown]
  - Pain [Unknown]
  - Arthralgia [Unknown]
  - Muscle spasms [Recovering/Resolving]
